FAERS Safety Report 20194372 (Version 1)
Quarter: 2021Q4

REPORT INFORMATION
  Report Type: Spontaneous
  Country: GB (occurrence: GB)
  Receive Date: 20211216
  Receipt Date: 20211216
  Transmission Date: 20220303
  Serious: Yes (Life-Threatening, Hospitalization)
  Sender: FDA-Public Use
  Company Number: GB-PFIZER INC-202101406255

PATIENT
  Age: 35 Year
  Sex: Female

DRUGS (12)
  1. TREMFYA [Interacting]
     Active Substance: GUSELKUMAB
     Indication: Psoriasis
     Route: 065
     Dates: start: 202108
  2. TREMFYA [Interacting]
     Active Substance: GUSELKUMAB
  3. TREMFYA [Interacting]
     Active Substance: GUSELKUMAB
  4. CYTARABINE [Interacting]
     Active Substance: CYTARABINE
     Indication: Acute myeloid leukaemia
     Route: 065
     Dates: start: 20210930, end: 20211010
  5. DAUNORUBICIN [Interacting]
     Active Substance: DAUNORUBICIN
     Indication: Acute myeloid leukaemia
     Route: 065
     Dates: start: 20210930, end: 20211004
  6. MYLOTARG [Interacting]
     Active Substance: GEMTUZUMAB OZOGAMICIN
     Indication: Acute myeloid leukaemia
     Route: 042
     Dates: start: 20210930, end: 20210930
  7. ACYCLOVIR [Concomitant]
     Active Substance: ACYCLOVIR
     Route: 048
  8. POSACONAZOLE [Concomitant]
     Active Substance: POSACONAZOLE
     Route: 048
  9. POSACONAZOLE [Concomitant]
     Active Substance: POSACONAZOLE
     Route: 048
  10. AMITRIPTYLINE [Concomitant]
     Active Substance: AMITRIPTYLINE
  11. XAMIOL [BETAMETHASONE DIPROPIONATE;CALCIPOTRIOL MONOHYDRATE] [Concomitant]
     Indication: Psoriasis
  12. LACTULOSE [Concomitant]
     Active Substance: LACTULOSE
     Dosage: 15 MLS
     Route: 065

REACTIONS (3)
  - Septic shock [Recovered/Resolved]
  - Drug interaction [Recovered/Resolved]
  - Infection [Recovered/Resolved with Sequelae]

NARRATIVE: CASE EVENT DATE: 20211018
